FAERS Safety Report 8070748-9 (Version None)
Quarter: 2012Q1

REPORT INFORMATION
  Report Type: 
  Country: None (occurrence: None)
  Receive Date: 20120125
  Receipt Date: 20120120
  Transmission Date: 20120608
  Serious: No
  Sender: FDA-Public Use
  Company Number: US-PFIZER INC-2012017876

PATIENT
  Age: 50 Year
  Sex: Female

DRUGS (4)
  1. FORMOTEROL FUMARATE [Suspect]
     Indication: ASTHMA
     Dosage: 100 MCG/5 MCG, 1 INHALATION, TWICE DAILY
     Route: 055
     Dates: start: 20110804, end: 20110819
  2. ZITHROMAX [Suspect]
     Dosage: UNK
     Dates: start: 20110727, end: 20110805
  3. ALBUTEROL [Suspect]
     Dosage: UNK
     Dates: start: 20110729, end: 20110829
  4. ADVAIR DISKUS 100/50 [Concomitant]
     Dosage: 250/80

REACTIONS (3)
  - DYSPNOEA [None]
  - SINUS DISORDER [None]
  - CHEST DISCOMFORT [None]
